FAERS Safety Report 14241769 (Version 1)
Quarter: 2017Q4

REPORT INFORMATION
  Report Type: Spontaneous
  Country: AU (occurrence: AU)
  Receive Date: 20171201
  Receipt Date: 20171201
  Transmission Date: 20180321
  Serious: Yes (Hospitalization)
  Sender: FDA-Public Use
  Company Number: AU-BAXTER-2017BAX039542

PATIENT
  Age: 64 Year
  Sex: Male

DRUGS (2)
  1. BAXTER 0.9% SODIUM CHLORIDE 900MG_100ML INJECTION BP BAG AHB1307_AHB13 [Suspect]
     Active Substance: SODIUM CHLORIDE
     Indication: MEDICATION DILUTION
     Dosage: VOLUME: AKC MINIBAG 100 ML (SINGLE PK IV); COMPOUNDED WITH IRON
     Route: 065
  2. IRON [Suspect]
     Active Substance: IRON
     Indication: PRODUCT USED FOR UNKNOWN INDICATION
     Dosage: INFUSION; COMPOUNDED WITH SODIUM CHLORIDE
     Route: 065

REACTIONS (1)
  - Hypotension [Unknown]

NARRATIVE: CASE EVENT DATE: 20171122
